FAERS Safety Report 13773985 (Version 1)
Quarter: 2017Q3

REPORT INFORMATION
  Report Type: Spontaneous
  Country: US (occurrence: US)
  Receive Date: 20170720
  Receipt Date: 20170720
  Transmission Date: 20171127
  Serious: No
  Sender: FDA-Public Use
  Company Number: None

PATIENT
  Age: 88 Year
  Sex: Female

DRUGS (1)
  1. CAPECITABINE 500MG ACCORD [Suspect]
     Active Substance: CAPECITABINE
     Indication: PRODUCT USED FOR UNKNOWN INDICATION
     Dosage: 1000 MG TWICE A DAY FOR 7 DAYS ON 7 DAYS OFF BY MOUTH
     Route: 048
     Dates: start: 20170208, end: 20170713

REACTIONS (1)
  - Fatigue [None]

NARRATIVE: CASE EVENT DATE: 20170701
